FAERS Safety Report 22246416 (Version 2)
Quarter: 2023Q2

REPORT INFORMATION
  Report Type: Report from Study
  Country: TW (occurrence: None)
  Receive Date: 20230424
  Receipt Date: 20230614
  Transmission Date: 20230722
  Serious: Yes (Hospitalization)
  Sender: FDA-Public Use
  Company Number: TW-Merck Healthcare KGaA-9394044

PATIENT
  Age: 64 Year
  Sex: Male
  Weight: 79 kg

DRUGS (6)
  1. AVELUMAB [Suspect]
     Active Substance: AVELUMAB
     Indication: Bladder cancer
     Route: 042
     Dates: start: 20230303, end: 20230331
  2. AVIPENDEKIN PEGOL [Suspect]
     Active Substance: AVIPENDEKIN PEGOL
     Indication: Bladder cancer
     Route: 042
     Dates: start: 20230303, end: 20230331
  3. ACETAMINOPHEN [Concomitant]
     Active Substance: ACETAMINOPHEN
     Indication: Premedication
     Route: 048
     Dates: start: 20230331, end: 20230331
  4. ACETAMINOPHEN [Concomitant]
     Active Substance: ACETAMINOPHEN
     Route: 048
     Dates: start: 20230331, end: 20230331
  5. CHLORPHENIRAMINE MALEATE [Concomitant]
     Active Substance: CHLORPHENIRAMINE MALEATE
     Indication: Premedication
     Route: 041
     Dates: start: 20230331, end: 20230331
  6. XYZAL [Concomitant]
     Active Substance: LEVOCETIRIZINE DIHYDROCHLORIDE
     Indication: Premedication
     Route: 048
     Dates: start: 20230331, end: 20230331

REACTIONS (1)
  - Infusion related reaction [Recovered/Resolved]

NARRATIVE: CASE EVENT DATE: 20230331
